FAERS Safety Report 25930110 (Version 1)
Quarter: 2025Q4

REPORT INFORMATION
  Report Type: Report from Study
  Country: US (occurrence: US)
  Receive Date: 20251016
  Receipt Date: 20251016
  Transmission Date: 20260117
  Serious: Yes (Hospitalization)
  Sender: ALEXION PHARMACEUTICALS
  Company Number: US-ASTRAZENECA-202510NAM009688US

PATIENT
  Age: 51 Year
  Sex: Female

DRUGS (2)
  1. STRENSIQ [Suspect]
     Active Substance: ASFOTASE ALFA
     Indication: Phosphorus metabolism disorder
     Dosage: 2 MILLIGRAM/KILOGRAM, TIW
  2. STRENSIQ [Suspect]
     Active Substance: ASFOTASE ALFA
     Dosage: 2 MILLIGRAM/KILOGRAM, TIW

REACTIONS (7)
  - Asthenia [Unknown]
  - Injection site reaction [Unknown]
  - Paraesthesia [Unknown]
  - Tendon operation [Unknown]
  - Gait disturbance [Unknown]
  - Hypermobility syndrome [Unknown]
  - Muscle tightness [Unknown]
